FAERS Safety Report 14120809 (Version 3)
Quarter: 2018Q1

REPORT INFORMATION
  Report Type: Spontaneous
  Country: IT (occurrence: IT)
  Receive Date: 20171024
  Receipt Date: 20180326
  Transmission Date: 20180508
  Serious: Yes (Life-Threatening)
  Sender: FDA-Public Use
  Company Number: IT-SA-2017SA200836

PATIENT
  Age: 45 Year
  Sex: Female

DRUGS (1)
  1. AUBAGIO [Suspect]
     Active Substance: TERIFLUNOMIDE
     Indication: RELAPSING-REMITTING MULTIPLE SCLEROSIS
     Route: 048
     Dates: start: 201507, end: 201612

REACTIONS (3)
  - Hypertension [Unknown]
  - Adenocarcinoma pancreas [Unknown]
  - Malaise [Unknown]

NARRATIVE: CASE EVENT DATE: 201612
